FAERS Safety Report 10208821 (Version 1)
Quarter: 2014Q2

REPORT INFORMATION
  Report Type: Spontaneous
  Country: US (occurrence: US)
  Receive Date: 20140530
  Receipt Date: 20140530
  Transmission Date: 20141212
  Serious: Yes (Hospitalization, Other)
  Sender: FDA-Public Use
  Company Number: US-ASTRAZENECA-2014SE35899

PATIENT
  Age: 82 Year
  Sex: Male
  Weight: 76.7 kg

DRUGS (13)
  1. CASODEX [Suspect]
     Indication: PROSTATE CANCER
     Route: 048
     Dates: start: 2002, end: 2011
  2. CASODEX [Suspect]
     Indication: PROSTATE CANCER
     Dosage: BICALUTAMIDE, 50 MG DAILY
     Route: 065
     Dates: start: 2011
  3. CASODEX [Suspect]
     Indication: PROSTATE CANCER
     Route: 048
     Dates: start: 201309
  4. NOVALOG FLEXPEN [Concomitant]
     Indication: TYPE 2 DIABETES MELLITUS
     Dosage: UP TO 50 UNITS DAILY, FLEXPEN IS GIVEN IN 3 DIVIDED DOSES.
     Route: 050
     Dates: start: 1996
  5. LEVIMIR [Concomitant]
     Indication: TYPE 2 DIABETES MELLITUS
     Dosage: UP TO 40 UNITS DAILY
     Route: 050
     Dates: start: 1996
  6. VITAMIN D [Concomitant]
     Indication: BONE DISORDER
     Route: 048
  7. ATORVASTATIN [Concomitant]
     Dosage: NOT REPORTED NR
     Dates: start: 201201, end: 201301
  8. ENALAPRIL [Concomitant]
     Indication: DIABETES MELLITUS
     Route: 048
     Dates: start: 1996
  9. ASPIRIN [Concomitant]
     Indication: CARDIAC DISORDER
     Route: 048
  10. CALCIUM+D2 [Concomitant]
     Indication: BONE DISORDER
     Route: 048
     Dates: start: 1996
  11. FISH OIL + OMEGA [Concomitant]
     Indication: BONE DISORDER
     Route: 048
     Dates: start: 1996
  12. B12 [Concomitant]
     Indication: PRODUCT USED FOR UNKNOWN INDICATION
     Route: 048
  13. LIPITOR [Concomitant]
     Indication: BLOOD CHOLESTEROL ABNORMAL
     Dates: start: 1996, end: 201201

REACTIONS (22)
  - Back pain [Recovering/Resolving]
  - Malignant neoplasm progression [Recovered/Resolved]
  - Eye disorder [Recovered/Resolved]
  - Glaucoma [Recovered/Resolved]
  - Oesophageal injury [Unknown]
  - Dehydration [Unknown]
  - Cerebrovascular accident [Unknown]
  - Pain [Unknown]
  - Eye infection [Unknown]
  - Blindness transient [Unknown]
  - Tunnel vision [Unknown]
  - Blood cholesterol increased [Recovered/Resolved]
  - Blood pressure increased [Unknown]
  - Renal disorder [Recovered/Resolved]
  - Blood pressure decreased [Unknown]
  - Fungal infection [Unknown]
  - Blood glucose increased [Not Recovered/Not Resolved]
  - Nausea [Recovered/Resolved]
  - Asthenia [Recovered/Resolved]
  - Constipation [Recovered/Resolved]
  - Dizziness [Recovered/Resolved]
  - Malaise [Recovered/Resolved]
